FAERS Safety Report 23981078 (Version 1)
Quarter: 2024Q2

REPORT INFORMATION
  Report Type: Spontaneous
  Country: NO (occurrence: NO)
  Receive Date: 20240617
  Receipt Date: 20240617
  Transmission Date: 20240716
  Serious: Yes (Other)
  Sender: FDA-Public Use
  Company Number: NO-BAYER-2024A054727

PATIENT
  Age: 48 Year

DRUGS (2)
  1. XOFIGO [Suspect]
     Active Substance: RADIUM RA-223 DICHLORIDE
     Dosage: UNK
     Dates: start: 20240209, end: 20240209
  2. XOFIGO [Suspect]
     Active Substance: RADIUM RA-223 DICHLORIDE
     Dosage: UNK
     Dates: start: 20240308, end: 20240308

REACTIONS (7)
  - Malignant neoplasm progression [Not Recovered/Not Resolved]
  - Haemoglobin decreased [None]
  - General physical health deterioration [None]
  - Infection [None]
  - Tumour associated fever [None]
  - Bowel movement irregularity [None]
  - Nausea [None]

NARRATIVE: CASE EVENT DATE: 20240403
